FAERS Safety Report 5971674-9 (Version None)
Quarter: 2008Q4

REPORT INFORMATION
  Report Type: 
  Country: None (occurrence: None)
  Receive Date: 20081201
  Receipt Date: 20081124
  Transmission Date: 20090506
  Serious: Yes (Hospitalization)
  Sender: FDA-Public Use
  Company Number: IT-ABBOTT-08P-083-0488321-00

PATIENT
  Sex: Male

DRUGS (1)
  1. HYTRIN [Suspect]
     Indication: DYSURIA
     Dosage: 2 MG ONCE
     Route: 048
     Dates: start: 20081030, end: 20081030

REACTIONS (2)
  - HEAD INJURY [None]
  - SYNCOPE [None]
